FAERS Safety Report 14514002 (Version 1)
Quarter: 2018Q1

REPORT INFORMATION
  Report Type: Spontaneous
  Country: US (occurrence: US)
  Receive Date: 20180209
  Receipt Date: 20180209
  Transmission Date: 20180509
  Serious: No
  Sender: FDA-Public Use
  Company Number: US-SA-2017SA245947

PATIENT
  Age: 58 Year
  Sex: Female

DRUGS (1)
  1. XYZAL ALLERGY 24HR [Suspect]
     Active Substance: LEVOCETIRIZINE DIHYDROCHLORIDE
     Indication: MULTIPLE ALLERGIES
     Dosage: ONCE DAILY
     Route: 048
     Dates: start: 201711, end: 201711

REACTIONS (3)
  - Chest discomfort [Recovered/Resolved]
  - Discomfort [Recovered/Resolved]
  - Unevaluable event [Recovered/Resolved]
